FAERS Safety Report 9838118 (Version 1)
Quarter: 2013Q4

REPORT INFORMATION
  Report Type: Spontaneous
  Country: US (occurrence: None)
  Receive Date: 20131205
  Receipt Date: 20131205
  Transmission Date: 20140711
  Serious: Yes (Hospitalization)
  Sender: FDA-Public Use
  Company Number: 163-POMAL-13092370

PATIENT
  Age: 75 Year
  Sex: Female
  Weight: 49.9 kg

DRUGS (9)
  1. POMALYST (POMALIDOMIDE) (4 MILLIGRAM, CAPSULES) [Suspect]
     Indication: PLASMA CELL MYELOMA
     Dosage: 4 MG, 1 IN 1 D, PO
     Route: 048
     Dates: start: 201303
  2. COREG (CARVEDILOL) [Concomitant]
  3. DEXAMETHASONE (DEXAMETHASONE) [Concomitant]
  4. ACYCLOVIR (ACICLOVIR) [Concomitant]
  5. CRESTOR (ROSUVASTATIN) [Concomitant]
  6. HYDROCORTISONE (HYDROCORTISONE) [Concomitant]
  7. RANITIDINE HCL (RANITIDINE HYDROCHLORIDE) [Concomitant]
  8. VITAMIN D (ERGOCALCIFEROL) [Concomitant]
  9. BABY ASPIRIN (ACETYLSALICYLIC ACID) [Concomitant]

REACTIONS (1)
  - Pneumonia legionella [None]
